FAERS Safety Report 8427031-9 (Version None)
Quarter: 2012Q2

REPORT INFORMATION
  Report Type: 
  Country: None (occurrence: None)
  Receive Date: 20120611
  Receipt Date: 20120605
  Transmission Date: 20120825
  Serious: Yes (Hospitalization)
  Sender: FDA-Public Use
  Company Number: AU-ROCHE-1075563

PATIENT
  Sex: Female

DRUGS (6)
  1. ESCITALOPRAM [Concomitant]
     Route: 048
     Dates: start: 20110101
  2. LIPITOR [Concomitant]
     Route: 048
     Dates: start: 19970101
  3. AVASTIN [Suspect]
     Indication: GLIOBLASTOMA MULTIFORME
     Dates: start: 20120509
  4. LEVOTHYROXINE SODIUM [Concomitant]
     Route: 048
     Dates: start: 19970101
  5. CARBOPLATIN [Suspect]
     Indication: GLIOBLASTOMA MULTIFORME
     Dates: start: 20120509
  6. AVASTIN [Suspect]
     Dates: start: 20120509

REACTIONS (1)
  - SKIN DISORDER [None]
